FAERS Safety Report 16754238 (Version 3)
Quarter: 2019Q4

REPORT INFORMATION
  Report Type: Report from Study
  Country: None (occurrence: US)
  Receive Date: 20190829
  Receipt Date: 20191104
  Transmission Date: 20200122
  Serious: Yes (Hospitalization)
  Sender: FDA-Public Use
  Company Number: US-ABBVIE-19K-163-2904387-00

PATIENT
  Age: 63 Year
  Sex: Male
  Weight: 115.77 kg

DRUGS (1)
  1. HUMIRA [Suspect]
     Active Substance: ADALIMUMAB
     Indication: CROHN^S DISEASE
     Route: 058
     Dates: start: 201901

REACTIONS (7)
  - Skin infection [Recovering/Resolving]
  - Dizziness [Recovering/Resolving]
  - Drug hypersensitivity [Unknown]
  - Dehydration [Recovering/Resolving]
  - Diarrhoea [Unknown]
  - Presyncope [Unknown]
  - Asthenia [Recovering/Resolving]

NARRATIVE: CASE EVENT DATE: 201908
